FAERS Safety Report 15538878 (Version 1)
Quarter: 2018Q4

REPORT INFORMATION
  Report Type: Spontaneous
  Country: JP (occurrence: JP)
  Receive Date: 20181022
  Receipt Date: 20181022
  Transmission Date: 20190205
  Serious: Yes (Other)
  Sender: FDA-Public Use
  Company Number: JP-EISAI MEDICAL RESEARCH-EC-2018-046594

PATIENT
  Age: 78 Year
  Sex: Female

DRUGS (5)
  1. SALAGEN [Suspect]
     Active Substance: PILOCARPINE HYDROCHLORIDE
     Indication: DRY MOUTH
     Route: 048
     Dates: start: 20180906, end: 201810
  2. SALAGEN [Suspect]
     Active Substance: PILOCARPINE HYDROCHLORIDE
     Indication: SJOGREN^S SYNDROME
     Route: 048
     Dates: start: 201810, end: 20181009
  3. EPADEL [Concomitant]
     Active Substance: ICOSAPENT
     Indication: PRODUCT USE IN UNAPPROVED INDICATION
     Dosage: UNKNOWN
     Route: 048
  4. TSUMURA BAKUMONDOTO EXTRACT GRANULES FOR ETHICAL USE [Concomitant]
     Indication: PRODUCT USE IN UNAPPROVED INDICATION
     Dosage: UNKNOWN
     Route: 048
  5. AMLODIN [Concomitant]
     Active Substance: AMLODIPINE BESYLATE
     Indication: PRODUCT USE IN UNAPPROVED INDICATION
     Dosage: UNKNOWN
     Route: 048

REACTIONS (3)
  - Nausea [Unknown]
  - Accidental overdose [Unknown]
  - Palpitations [Unknown]

NARRATIVE: CASE EVENT DATE: 201810
